FAERS Safety Report 18930292 (Version 1)
Quarter: 2021Q1

REPORT INFORMATION
  Report Type: Spontaneous
  Country: FR (occurrence: FR)
  Receive Date: 20210223
  Receipt Date: 20210223
  Transmission Date: 20210420
  Serious: Yes (Hospitalization)
  Sender: FDA-Public Use
  Company Number: FR-MYLANLABS-2021M1010820

PATIENT
  Age: 93 Year
  Sex: Female
  Weight: 40 kg

DRUGS (6)
  1. SERESTA [Suspect]
     Active Substance: OXAZEPAM
     Indication: ANXIETY
     Dosage: 10 MILLIGRAM, QD
     Route: 048
  2. HYDREA [Concomitant]
     Active Substance: HYDROXYUREA
     Indication: THROMBOCYTOPENIA
     Dosage: 500 MILLIGRAM, QD
     Route: 048
  3. MIRTAZAPINE. [Concomitant]
     Active Substance: MIRTAZAPINE
     Indication: DEPRESSION
     Dosage: 15 MILLIGRAM, QD
     Route: 048
  4. SOTALOL. [Suspect]
     Active Substance: SOTALOL
     Indication: TACHYCARDIA
     Dosage: 40 MILLIGRAM, QD
     Route: 048
     Dates: end: 20200609
  5. MODOPAR [Suspect]
     Active Substance: BENSERAZIDE HYDROCHLORIDE\LEVODOPA
     Indication: PARKINSON^S DISEASE
     Dosage: 4 DOSAGE FORM, QD
     Route: 048
  6. RESITUNE [Concomitant]
     Active Substance: ASPIRIN
     Indication: PRODUCT USED FOR UNKNOWN INDICATION
     Dosage: 15 MILLIGRAM, QD
     Route: 048

REACTIONS (1)
  - Fall [Recovering/Resolving]

NARRATIVE: CASE EVENT DATE: 20190608
